FAERS Safety Report 9405201 (Version 2)
Quarter: 2015Q2

REPORT INFORMATION
  Report Type: Spontaneous
  Country: MA (occurrence: MA)
  Receive Date: 20130717
  Receipt Date: 20150505
  Transmission Date: 20150821
  Serious: Yes (Death, Hospitalization)
  Sender: FDA-Public Use
  Company Number: PHHY2013MA074835

PATIENT
  Age: 21 Year
  Sex: Male

DRUGS (2)
  1. OLANZAPINE. [Suspect]
     Active Substance: OLANZAPINE
     Indication: CATATONIA
     Dosage: 10 MG, QD
     Route: 065
  2. LORAZEPAM. [Suspect]
     Active Substance: LORAZEPAM
     Indication: CATATONIA
     Dosage: 15 MG, UNK
     Route: 065

REACTIONS (14)
  - Dehydration [Unknown]
  - Pyrexia [Unknown]
  - Agitation [Unknown]
  - Negativism [Unknown]
  - Drug ineffective [Unknown]
  - Hyperhidrosis [Unknown]
  - Sinus tachycardia [Unknown]
  - Circulatory collapse [Fatal]
  - Blood pressure fluctuation [Unknown]
  - Depressed level of consciousness [Unknown]
  - Stupor [Unknown]
  - Catatonia [Unknown]
  - Musculoskeletal stiffness [Unknown]
  - Leukocytosis [Unknown]
